FAERS Safety Report 9442124 (Version 1)
Quarter: 2013Q3

REPORT INFORMATION
  Report Type: Report from Study
  Country: JP (occurrence: JP)
  Receive Date: 20130806
  Receipt Date: 20130806
  Transmission Date: 20140515
  Serious: Yes (Hospitalization, Other)
  Sender: FDA-Public Use
  Company Number: JP-AMGEN-JPNCT2013054931

PATIENT
  Age: 79 Year
  Sex: Male
  Weight: 48 kg

DRUGS (26)
  1. DARBEPOETIN ALFA [Suspect]
     Indication: NEPHROGENIC ANAEMIA
     Dosage: 30 MUG, Q2WK
     Route: 040
     Dates: start: 20110613, end: 20110627
  2. DARBEPOETIN ALFA [Suspect]
     Dosage: 40 MUG, Q4WK
     Route: 040
     Dates: start: 20110714, end: 20111006
  3. DARBEPOETIN ALFA [Suspect]
     Dosage: 60 MUG, Q2WK
     Route: 040
     Dates: start: 20111125, end: 20111222
  4. DARBEPOETIN ALFA [Suspect]
     Dosage: 60 MUG, Q4WK
     Route: 040
     Dates: start: 20120123, end: 20120322
  5. DARBEPOETIN ALFA [Suspect]
     Dosage: 40 MUG, UNK
     Route: 040
     Dates: start: 20120426, end: 20120531
  6. DARBEPOETIN ALFA [Suspect]
     Dosage: 40 MUG, UNK
     Route: 040
     Dates: start: 20120705, end: 20121227
  7. DARBEPOETIN ALFA [Suspect]
     Dosage: 40 MUG, QD
     Route: 040
     Dates: start: 20130122, end: 20130122
  8. DARBEPOETIN ALFA [Suspect]
     Dosage: 60 MUG, Q2WK
     Route: 040
     Dates: start: 20130129, end: 20130214
  9. DARBEPOETIN ALFA [Suspect]
     Dosage: 40 MUG, QD
     Route: 040
     Dates: start: 20130321, end: 20130321
  10. DARBEPOETIN ALFA [Suspect]
     Dosage: 40 MUG, UNK
     Route: 040
     Dates: start: 20130530
  11. PREDONINE [Concomitant]
     Indication: NEPHRITIS
     Dosage: UNK
     Route: 048
  12. HALFDIGOXIN [Concomitant]
     Dosage: UNK
     Route: 048
  13. GASTER D [Concomitant]
     Dosage: UNK
     Route: 048
  14. ZYLORIC [Concomitant]
     Dosage: UNK
     Route: 048
  15. GENINAX [Concomitant]
     Dosage: UNK
     Route: 048
  16. BLOPRESS [Concomitant]
     Dosage: UNK
     Route: 048
  17. FERROMIA [Concomitant]
     Dosage: UNK
     Route: 048
  18. GASMOTIN [Concomitant]
     Dosage: UNK
     Route: 048
  19. PURSENNID [Concomitant]
     Dosage: UNK
     Route: 048
  20. ALOSENN [Concomitant]
     Dosage: UNK
     Route: 048
  21. ZOSYN [Concomitant]
     Dosage: UNK
     Route: 041
  22. DORNER [Concomitant]
     Dosage: UNK
     Route: 048
  23. WARFARIN [Concomitant]
     Dosage: UNK
     Route: 048
  24. LAC-B [Concomitant]
     Dosage: UNK
     Route: 048
  25. KLARICID [Concomitant]
     Dosage: UNK
     Route: 048
  26. FEBURIC [Concomitant]
     Dosage: UNK
     Route: 048

REACTIONS (7)
  - Renal impairment [Not Recovered/Not Resolved]
  - Epistaxis [Recovering/Resolving]
  - Constipation [Recovered/Resolved]
  - Bronchitis [Recovered/Resolved]
  - Enterocolitis viral [Recovered/Resolved]
  - Bronchitis [Recovering/Resolving]
  - Anaemia [Recovering/Resolving]
